FAERS Safety Report 20885882 (Version 3)
Quarter: 2022Q2

REPORT INFORMATION
  Report Type: Report from Study
  Country: CO (occurrence: CO)
  Receive Date: 20220527
  Receipt Date: 20220613
  Transmission Date: 20220721
  Serious: Yes (Life-Threatening, Hospitalization, Other)
  Sender: FDA-Public Use
  Company Number: CO-BRISTOL-MYERS SQUIBB COMPANY-BMS-2021-068375

PATIENT
  Age: 30 Year
  Sex: Male
  Weight: 81 kg

DRUGS (3)
  1. ORENCIA [Suspect]
     Active Substance: ABATACEPT
     Indication: Rheumatoid arthritis
     Route: 058
     Dates: start: 20160101
  2. ORENCIA [Suspect]
     Active Substance: ABATACEPT
  3. PREDNISOLONE ACETATE [Concomitant]
     Active Substance: PREDNISOLONE ACETATE
     Indication: Product used for unknown indication
     Route: 065

REACTIONS (11)
  - Immune system disorder [Recovering/Resolving]
  - COVID-19 [Recovering/Resolving]
  - Tuberculosis [Recovering/Resolving]
  - Sepsis [Recovering/Resolving]
  - Arthritis [Recovering/Resolving]
  - Tachycardia [Recovering/Resolving]
  - Diarrhoea [Recovering/Resolving]
  - Oxygen saturation decreased [Recovering/Resolving]
  - Pulmonary fibrosis [Unknown]
  - Lung disorder [Recovering/Resolving]
  - Gastrooesophageal reflux disease [Not Recovered/Not Resolved]

NARRATIVE: CASE EVENT DATE: 20210629
